FAERS Safety Report 6484434-X (Version None)
Quarter: 2009Q4

REPORT INFORMATION
  Report Type: 
  Country: None (occurrence: None)
  Receive Date: 20091209
  Receipt Date: 20091130
  Transmission Date: 20100525
  Serious: Yes (Other)
  Sender: FDA-Public Use
  Company Number: US-GENENTECH-294028

PATIENT

DRUGS (1)
  1. NUTROPIN [Suspect]
     Indication: MUCOPOLYSACCHARIDOSIS IH

REACTIONS (1)
  - KYPHOSIS [None]
